FAERS Safety Report 14292860 (Version 1)
Quarter: 2017Q4

REPORT INFORMATION
  Report Type: Spontaneous
  Country: IE (occurrence: IE)
  Receive Date: 20171215
  Receipt Date: 20171215
  Transmission Date: 20180321
  Serious: Yes (Hospitalization, Congenital Anomaly, Other)
  Sender: FDA-Public Use
  Company Number: IE-SA-2017SA246903

PATIENT
  Sex: Male
  Weight: 3.82 kg

DRUGS (4)
  1. NOVORAPID [Suspect]
     Active Substance: INSULIN ASPART
     Route: 063
     Dates: start: 20160501, end: 20170204
  2. LANTUS [Suspect]
     Active Substance: INSULIN GLARGINE
     Route: 064
  3. LANTUS [Suspect]
     Active Substance: INSULIN GLARGINE
     Route: 063
     Dates: end: 20170204
  4. NOVORAPID [Suspect]
     Active Substance: INSULIN ASPART
     Route: 064

REACTIONS (5)
  - Exposure during breast feeding [Recovered/Resolved]
  - Hypoglycaemia neonatal [Recovered/Resolved]
  - Foetal exposure during pregnancy [Recovered/Resolved]
  - Ankyloglossia congenital [Recovered/Resolved]
  - Convulsion neonatal [Recovered/Resolved]

NARRATIVE: CASE EVENT DATE: 20170204
